FAERS Safety Report 12461828 (Version 1)
Quarter: 2016Q2

REPORT INFORMATION
  Report Type: Spontaneous
  Country: US (occurrence: US)
  Receive Date: 20160613
  Receipt Date: 20160613
  Transmission Date: 20160815
  Serious: No
  Sender: FDA-Public Use
  Company Number: US-BAYER-2016-114470

PATIENT
  Age: 67 Year
  Sex: Male
  Weight: 79.37 kg

DRUGS (6)
  1. HYDROXYZINE PAMOATE. [Concomitant]
     Active Substance: HYDROXYZINE PAMOATE
  2. ALEVE [Suspect]
     Active Substance: NAPROXEN SODIUM
     Indication: ANALGESIC THERAPY
     Dosage: 2 DF, BID, WITH GOATS MILK
     Route: 048
     Dates: start: 201606
  3. SAW PALMETTO [Concomitant]
     Active Substance: SAW PALMETTO
  4. ECHINACEA [Concomitant]
     Active Substance: ECHINACEA, UNSPECIFIED
  5. GABAPENTIN. [Concomitant]
     Active Substance: GABAPENTIN
  6. CITALOPRAM HYDROBROMIDE. [Concomitant]
     Active Substance: CITALOPRAM HYDROBROMIDE

REACTIONS (3)
  - Gingival pain [Not Recovered/Not Resolved]
  - Product use issue [None]
  - Gingival swelling [None]

NARRATIVE: CASE EVENT DATE: 20160609
